FAERS Safety Report 8399631 (Version 2)
Quarter: 2018Q1

REPORT INFORMATION
  Report Type: Spontaneous
  Country: US (occurrence: US)
  Receive Date: 20120210
  Receipt Date: 20180321
  Transmission Date: 20180509
  Serious: Yes (Other)
  Sender: FDA-Public Use
  Company Number: US-PFIZER INC-2012034529

PATIENT
  Age: 23 Year
  Sex: Male
  Weight: 72.56 kg

DRUGS (3)
  1. DIFLUCAN [Suspect]
     Active Substance: FLUCONAZOLE
     Indication: FUNGAL INFECTION
  2. DIFLUCAN [Suspect]
     Active Substance: FLUCONAZOLE
     Indication: FUNGAL INFECTION
     Dosage: 1 DF, WEEKLY (ONE PILL ONCE A WEEK FOR 2 WEEKS)
     Route: 048
     Dates: start: 2011
  3. DIFLUCAN [Suspect]
     Active Substance: FLUCONAZOLE
     Indication: RASH MACULAR

REACTIONS (4)
  - Condition aggravated [Recovering/Resolving]
  - Breath odour [Recovering/Resolving]
  - Vomiting [Unknown]
  - Haematochezia [Unknown]

NARRATIVE: CASE EVENT DATE: 2011
